FAERS Safety Report 17290935 (Version 1)
Quarter: 2020Q1

REPORT INFORMATION
  Report Type: Spontaneous
  Country: IQ (occurrence: IQ)
  Receive Date: 20200121
  Receipt Date: 20200121
  Transmission Date: 20200409
  Serious: Yes (Life-Threatening)
  Sender: FDA-Public Use
  Company Number: IQ-BAYER-2019-219763

PATIENT
  Age: 80 Year
  Sex: Male

DRUGS (1)
  1. ULTRAVIST [Suspect]
     Active Substance: IOPROMIDE
     Dosage: UNK, ONCE

REACTIONS (3)
  - Pyrexia [Unknown]
  - Tachycardia [Unknown]
  - Nausea [Unknown]

NARRATIVE: CASE EVENT DATE: 20190728
